FAERS Safety Report 24757960 (Version 1)
Quarter: 2024Q4

REPORT INFORMATION
  Report Type: Spontaneous
  Country: US (occurrence: US)
  Receive Date: 20241220
  Receipt Date: 20241220
  Transmission Date: 20250115
  Serious: Yes (Other)
  Sender: OCTAPHARMA
  Company Number: US-OCTA-2024000080

PATIENT
  Age: 84 Year
  Sex: Male

DRUGS (2)
  1. ALBUMIN HUMAN [Suspect]
     Active Substance: ALBUMIN HUMAN
     Indication: Hypoalbuminaemia
     Route: 042
  2. FUROSEMIDE [Concomitant]
     Active Substance: FUROSEMIDE
     Indication: Polyuria
     Route: 042

REACTIONS (4)
  - Anaphylactic reaction [Unknown]
  - Rash pruritic [Unknown]
  - Shock [Unknown]
  - Acute respiratory failure [Unknown]
